FAERS Safety Report 16816601 (Version 1)
Quarter: 2019Q3

REPORT INFORMATION
  Report Type: Spontaneous
  Country: IT (occurrence: IT)
  Receive Date: 20190917
  Receipt Date: 20190917
  Transmission Date: 20191005
  Serious: Yes (Other)
  Sender: FDA-Public Use
  Company Number: IT-TEVA-2019-IT-1107030

PATIENT
  Age: 71 Year
  Sex: Male

DRUGS (2)
  1. CARBOPLATIN. [Suspect]
     Active Substance: CARBOPLATIN
     Indication: LUNG NEOPLASM MALIGNANT
     Dosage: 250 MG
     Route: 042
     Dates: start: 20190606, end: 20190620
  2. GEMCITABINE. [Suspect]
     Active Substance: GEMCITABINE
     Indication: LUNG NEOPLASM MALIGNANT
     Dosage: 1200 MG
     Route: 042
     Dates: start: 20190606

REACTIONS (2)
  - Thrombocytopenia [Unknown]
  - Bone marrow toxicity [Unknown]

NARRATIVE: CASE EVENT DATE: 20190613
